FAERS Safety Report 9735419 (Version 2)
Quarter: 2013Q4

REPORT INFORMATION
  Report Type: Spontaneous
  Country: US (occurrence: US)
  Receive Date: 20131206
  Receipt Date: 20131210
  Transmission Date: 20140711
  Serious: Yes (Other)
  Sender: FDA-Public Use
  Company Number: CHPA2013US017842

PATIENT
  Age: 67 Year
  Sex: Male

DRUGS (2)
  1. VOLTAREN GEL [Suspect]
     Indication: ARTHRALGIA
     Dosage: 4 G, 1 OR 2 TIMES PER DAY
     Route: 061
  2. BABY ASPIRIN [Concomitant]
     Dosage: UNK
     Dates: start: 2010

REACTIONS (3)
  - Myocardial infarction [Recovered/Resolved]
  - Arterial occlusive disease [Recovered/Resolved]
  - Underdose [Unknown]
